FAERS Safety Report 6139525-X (Version None)
Quarter: 2009Q2

REPORT INFORMATION
  Report Type: 
  Country: None (occurrence: None)
  Receive Date: 20090401
  Receipt Date: 20090310
  Transmission Date: 20091009
  Serious: Yes (Death, Hospitalization)
  Sender: FDA-Public Use
  Company Number: PHEH2009US00456

PATIENT
  Sex: Male

DRUGS (1)
  1. GLEEVEC [Suspect]
     Indication: DERMATOFIBROSARCOMA
     Dosage: 800 MG, QD
     Route: 048
     Dates: start: 20080901, end: 20081201

REACTIONS (6)
  - FIBROSARCOMA [None]
  - NEOPLASM PROGRESSION [None]
  - PSEUDOMONAS INFECTION [None]
  - SEPSIS [None]
  - VENOUS THROMBOSIS [None]
  - WOUND INFECTION PSEUDOMONAS [None]
